FAERS Safety Report 5853953-9 (Version None)
Quarter: 2008Q3

REPORT INFORMATION
  Report Type: 
  Country: None (occurrence: None)
  Receive Date: 20080822
  Receipt Date: 20080814
  Transmission Date: 20090109
  Serious: Yes (Hospitalization)
  Sender: FDA-Public Use
  Company Number: B0533523A

PATIENT
  Age: 78 Year
  Sex: Male

DRUGS (6)
  1. ARIXTRA [Suspect]
     Indication: DRUG USE FOR UNKNOWN INDICATION
     Route: 058
     Dates: start: 20080201, end: 20080209
  2. LASIX [Suspect]
     Indication: DRUG USE FOR UNKNOWN INDICATION
     Route: 048
     Dates: start: 20080201, end: 20080204
  3. TARKA [Concomitant]
     Dosage: 1UNIT PER DAY
     Route: 048
  4. FRACTAL [Concomitant]
     Dosage: 40MG PER DAY
     Route: 048
  5. PHYSIOTENS [Concomitant]
     Dosage: 1UNIT PER DAY
     Route: 048
  6. XATRAL [Concomitant]
     Dosage: 1UNIT PER DAY
     Route: 048

REACTIONS (4)
  - ERYSIPELAS [None]
  - INJURY [None]
  - RENAL FAILURE CHRONIC [None]
  - SPONTANEOUS HAEMATOMA [None]
